FAERS Safety Report 10159605 (Version 1)
Quarter: 2014Q2

REPORT INFORMATION
  Report Type: Not Available
  Country: CA (occurrence: CA)
  Receive Date: 20140508
  Receipt Date: 20140508
  Transmission Date: 20141212
  Serious: Yes (Hospitalization)
  Sender: FDA-Public Use
  Company Number: 2014SP001416

PATIENT
  Age: 34 Year
  Sex: Male

DRUGS (4)
  1. LATUDA [Suspect]
     Route: 048
  2. LORAZEPAM [Concomitant]
  3. PAROXETINE [Concomitant]
  4. TRAZODONE [Concomitant]

REACTIONS (6)
  - Disinhibition [Unknown]
  - Impulsive behaviour [Unknown]
  - Energy increased [Unknown]
  - Mania [Unknown]
  - Speech disorder [Unknown]
  - Tachyphrenia [Unknown]
